FAERS Safety Report 21314044 (Version 1)
Quarter: 2022Q3

REPORT INFORMATION
  Report Type: Spontaneous
  Country: BG (occurrence: BG)
  Receive Date: 20220909
  Receipt Date: 20220909
  Transmission Date: 20221027
  Serious: Yes (Hospitalization, Other)
  Sender: FDA-Public Use
  Company Number: BG-ABBVIE-22K-022-4532481-00

PATIENT
  Age: 48 Year
  Sex: Male

DRUGS (1)
  1. HUMIRA [Suspect]
     Active Substance: ADALIMUMAB
     Indication: Ankylosing spondylitis
     Route: 058
     Dates: start: 201203

REACTIONS (5)
  - Vasculitis necrotising [Unknown]
  - Purpura [Unknown]
  - Vasculitis [Unknown]
  - Cutaneous vasculitis [Unknown]
  - Rash maculo-papular [Unknown]
